FAERS Safety Report 6238997-X (Version None)
Quarter: 2009Q2

REPORT INFORMATION
  Report Type: 
  Country: None (occurrence: None)
  Receive Date: 20090622
  Receipt Date: 20090611
  Transmission Date: 20091009
  Serious: Yes (Hospitalization)
  Sender: FDA-Public Use
  Company Number: B0554884A

PATIENT
  Sex: Female
  Weight: 67 kg

DRUGS (13)
  1. SERETIDE [Suspect]
     Indication: CHRONIC OBSTRUCTIVE PULMONARY DISEASE
     Dosage: 1PUFF TWICE PER DAY
     Route: 055
     Dates: start: 20060101
  2. ALENDRONATE SODIUM [Concomitant]
     Indication: OSTEOPOROSIS
     Dosage: 70MG WEEKLY
     Route: 065
     Dates: start: 20020101
  3. VENLAFAXINE HYDROCHLORIDE [Concomitant]
     Indication: DEPRESSION
     Dosage: 70MG PER DAY
     Route: 065
     Dates: start: 20020101
  4. DIGOXIN [Concomitant]
     Indication: ATRIAL FIBRILLATION
     Dosage: 120MG PER DAY
     Route: 065
     Dates: start: 20040101
  5. TRAMADOL HCL [Concomitant]
     Indication: OSTEOARTHRITIS
     Dosage: 100MG FOUR TIMES PER DAY
     Route: 065
     Dates: start: 20030101
  6. LEVOTHYROXINE SODIUM [Concomitant]
     Indication: HYPOTHYROIDISM
     Dosage: 200MCG PER DAY
     Route: 065
     Dates: start: 20060101
  7. CANDESARTAN [Concomitant]
     Indication: LEFT VENTRICULAR FAILURE
     Dosage: 40MG PER DAY
     Route: 065
     Dates: start: 20050101
  8. FRUSEMIDE [Concomitant]
     Indication: LEFT VENTRICULAR FAILURE
     Dosage: 40MG PER DAY
     Route: 065
     Dates: start: 20060101
  9. WARFARIN SODIUM [Concomitant]
     Indication: ATRIAL FIBRILLATION
     Route: 065
     Dates: start: 20040101
  10. PARACETAMOL [Concomitant]
     Indication: OSTEOARTHRITIS
     Dosage: 1G FOUR TIMES PER DAY
     Route: 065
     Dates: start: 20030101
  11. SIMVASTATIN [Concomitant]
     Indication: BLOOD CHOLESTEROL INCREASED
     Dosage: 20MG PER DAY
     Route: 065
     Dates: start: 20040101
  12. ALBUTEROL [Concomitant]
     Indication: CHRONIC OBSTRUCTIVE PULMONARY DISEASE
     Route: 065
     Dates: start: 20050101
  13. IPRATROPIUM BROMIDE [Concomitant]
     Indication: CHRONIC OBSTRUCTIVE PULMONARY DISEASE
     Route: 065
     Dates: start: 20050101

REACTIONS (3)
  - DIARRHOEA [None]
  - MALAISE [None]
  - PNEUMONIA [None]
